FAERS Safety Report 10235989 (Version 1)
Quarter: 2014Q2

REPORT INFORMATION
  Report Type: Spontaneous
  Country: US (occurrence: None)
  Receive Date: 20140612
  Receipt Date: 20140612
  Transmission Date: 20141212
  Serious: Yes (Hospitalization)
  Sender: FDA-Public Use
  Company Number: None

PATIENT
  Age: 52 Year
  Sex: Male
  Weight: 99.7 kg

DRUGS (1)
  1. NAPROXEN 220 MG EQUALINE [Suspect]
     Indication: BACK PAIN
     Dates: end: 20140508

REACTIONS (6)
  - Dyspnoea [None]
  - Dizziness [None]
  - Fatigue [None]
  - Haemoglobin decreased [None]
  - Arthralgia [None]
  - Gastric ulcer [None]
